FAERS Safety Report 7213910-7 (Version None)
Quarter: 2011Q1

REPORT INFORMATION
  Report Type: 
  Country: None (occurrence: None)
  Receive Date: 20110106
  Receipt Date: 20101227
  Transmission Date: 20110831
  Serious: Yes (Other)
  Sender: FDA-Public Use
  Company Number: TR-GILEAD-2010-0034743

PATIENT
  Sex: Male

DRUGS (1)
  1. VIREAD [Suspect]
     Indication: HEPATITIS B

REACTIONS (1)
  - BONE DISORDER [None]
